FAERS Safety Report 5331047-9 (Version None)
Quarter: 2007Q2

REPORT INFORMATION
  Report Type: 
  Country: None (occurrence: None)
  Receive Date: 20070522
  Receipt Date: 20070521
  Transmission Date: 20071010
  Serious: Yes (Other)
  Sender: FDA-Public Use
  Company Number: A0652188A

PATIENT
  Age: 59 Year
  Sex: Male

DRUGS (6)
  1. COREG CR [Suspect]
     Indication: POSTOPERATIVE CARE
     Dosage: 40MG PER DAY
     Route: 048
     Dates: start: 20070510
  2. COREG [Suspect]
     Indication: POSTOPERATIVE CARE
     Dosage: 6.25MG TWICE PER DAY
     Route: 048
     Dates: start: 20070301, end: 20070501
  3. ASPIRIN [Concomitant]
  4. PENICILLIN [Concomitant]
  5. HYDROCODONE BITARTRATE [Concomitant]
  6. XANAX [Concomitant]

REACTIONS (3)
  - DIZZINESS POSTURAL [None]
  - FATIGUE [None]
  - SUPRAVENTRICULAR TACHYCARDIA [None]
